FAERS Safety Report 12609627 (Version 1)
Quarter: 2016Q3

REPORT INFORMATION
  Report Type: Report from Study
  Country: US (occurrence: US)
  Receive Date: 20160801
  Receipt Date: 20160801
  Transmission Date: 20161109
  Serious: Yes (Other)
  Sender: FDA-Public Use
  Company Number: US-ROCHE-1179658

PATIENT
  Age: 60 Year
  Sex: Female
  Weight: 72.3 kg

DRUGS (11)
  1. VISMODEGIB [Suspect]
     Active Substance: VISMODEGIB
     Route: 048
     Dates: start: 20110611, end: 20110726
  2. VISMODEGIB [Suspect]
     Active Substance: VISMODEGIB
     Route: 048
     Dates: start: 20110328
  3. VISMODEGIB [Suspect]
     Active Substance: VISMODEGIB
     Route: 048
     Dates: start: 20110421
  4. VISMODEGIB [Suspect]
     Active Substance: VISMODEGIB
     Route: 048
     Dates: start: 20110603
  5. VISMODEGIB [Suspect]
     Active Substance: VISMODEGIB
     Route: 048
     Dates: start: 20110625
  6. ETOPOSIDE. [Suspect]
     Active Substance: ETOPOSIDE
     Indication: SMALL CELL LUNG CANCER
     Dosage: TOTAL DOSE ADMINISTERED ON MOST RECENT COURSE: 558MG. LAST ADMINISTERED 09/MAR/2011
     Route: 042
     Dates: start: 20110214, end: 20110726
  7. CISPLATIN. [Suspect]
     Active Substance: CISPLATIN
     Indication: SMALL CELL LUNG CANCER
     Dosage: TOTAL DOSE ADMINISTERED ON MOST RECENT COURSE: 140MG. LAST ADMINISTERED 07/MAR/2011
     Route: 042
     Dates: start: 20110214, end: 20110726
  8. VISMODEGIB [Suspect]
     Active Substance: VISMODEGIB
     Route: 048
     Dates: start: 20110307
  9. VISMODEGIB [Suspect]
     Active Substance: VISMODEGIB
     Route: 048
     Dates: start: 20110512
  10. VISMODEGIB [Suspect]
     Active Substance: VISMODEGIB
     Indication: SMALL CELL LUNG CANCER
     Dosage: TOTAL DOSE ADMINISTERED ON MOST RECENT COURSE: 3150MG. LAST ADMINISTERED 27/MAR/2011
     Route: 048
     Dates: start: 20110214
  11. VISMODEGIB [Suspect]
     Active Substance: VISMODEGIB
     Route: 048
     Dates: start: 20110716

REACTIONS (7)
  - Fatigue [Unknown]
  - Neutrophil count decreased [Unknown]
  - Ear pain [Unknown]
  - Insomnia [Unknown]
  - Embolism [Unknown]
  - Vomiting [Unknown]
  - Non-cardiac chest pain [Unknown]

NARRATIVE: CASE EVENT DATE: 20110625
